FAERS Safety Report 12114462 (Version 1)
Quarter: 2016Q1

REPORT INFORMATION
  Report Type: Spontaneous
  Country: US (occurrence: None)
  Receive Date: 20160224
  Receipt Date: 20160224
  Transmission Date: 20160526
  Serious: Yes (Hospitalization)
  Sender: FDA-Public Use
  Company Number: None

PATIENT
  Age: 57 Year
  Sex: Male
  Weight: 104.1 kg

DRUGS (1)
  1. MEMANTINE HYDROCHLORIDE 1645 MG [Suspect]
     Active Substance: MEMANTINE HYDROCHLORIDE
     Dates: start: 20160208, end: 20160216

REACTIONS (4)
  - Pyrexia [None]
  - Diverticulitis [None]
  - Diverticular perforation [None]
  - Abdominal pain [None]

NARRATIVE: CASE EVENT DATE: 20160208
